FAERS Safety Report 6751540-1 (Version None)
Quarter: 2010Q2

REPORT INFORMATION
  Report Type: 
  Country: None (occurrence: None)
  Receive Date: 20100528
  Receipt Date: 20100519
  Transmission Date: 20101027
  Serious: Yes (Congenital Anomaly)
  Sender: FDA-Public Use
  Company Number: DSA_43164_2010

PATIENT
  Sex: Female

DRUGS (3)
  1. WELLBUTRIN XL [Suspect]
     Indication: DRUG USE FOR UNKNOWN INDICATION
     Dosage: 450 MG QD TRANSPLACENTAL
     Route: 064
     Dates: start: 20080101, end: 20090201
  2. CYMBALTA [Suspect]
     Indication: DRUG USE FOR UNKNOWN INDICATION
     Dosage: 60 MG QD TRANSPLACENTAL
     Route: 064
     Dates: start: 20080101, end: 20090201
  3. KLONOPIN [Suspect]
     Indication: DRUG USE FOR UNKNOWN INDICATION
     Dosage: DOSE AS NEEDED TRANSPLACENTAL
     Route: 064
     Dates: start: 20080101, end: 20090201

REACTIONS (4)
  - DYSPHAGIA [None]
  - LARYNGOMALACIA [None]
  - MATERNAL DRUGS AFFECTING FOETUS [None]
  - SPEECH DISORDER [None]
